FAERS Safety Report 8364224-3 (Version None)
Quarter: 2012Q2

REPORT INFORMATION
  Report Type: 
  Country: None (occurrence: None)
  Receive Date: 20120516
  Receipt Date: 20120508
  Transmission Date: 20120825
  Serious: Yes (Other)
  Sender: FDA-Public Use
  Company Number: PHEH2011US010199

PATIENT
  Sex: Female
  Weight: 90.703 kg

DRUGS (16)
  1. TYLENOL ARTHRITIS [Concomitant]
     Dosage: 650 MG, UNK
  2. ASPIRIN [Concomitant]
     Dosage: 81 MG, UNK
  3. LEVAQUIN [Concomitant]
     Dosage: 500 MG
  4. SPIRONOLACTONE [Concomitant]
     Dosage: 25 MG, UNK
  5. TYLENOL (CAPLET) [Concomitant]
  6. TASIGNA [Suspect]
     Indication: CHRONIC MYELOID LEUKAEMIA
     Dosage: 150 MG, BID
     Route: 048
     Dates: start: 20110409
  7. ASPIRIN [Concomitant]
  8. GLEEVEC [Suspect]
  9. OXYBUTYNIN [Concomitant]
     Dosage: 5 MG
  10. PREMARIN [Concomitant]
     Dosage: 0.625 MG, UNK
  11. VITAMIN B COMPLEX CAP [Concomitant]
  12. STOOL SOFTENER [Concomitant]
     Dosage: 100 MG
  13. ALDACTONE [Concomitant]
  14. PRILOSEC [Concomitant]
  15. DEPAKOTE [Concomitant]
     Dosage: 500 MG
  16. VITAMIN D [Concomitant]
     Dosage: 400 U

REACTIONS (8)
  - CHRONIC MYELOID LEUKAEMIA [None]
  - FATIGUE [None]
  - INCREASED UPPER AIRWAY SECRETION [None]
  - NAUSEA [None]
  - DECREASED APPETITE [None]
  - MYALGIA [None]
  - NEOPLASM MALIGNANT [None]
  - ANAEMIA [None]
